FAERS Safety Report 13948593 (Version 1)
Quarter: 2017Q3

REPORT INFORMATION
  Report Type: Other
  Country: None (occurrence: NZ)
  Receive Date: 20170908
  Receipt Date: 20170908
  Transmission Date: 20171128
  Serious: Yes (Other)
  Sender: FDA-Public Use
  Company Number: NZ-POPULATION COUNCIL, INC.-2025744

PATIENT
  Age: 29 Year
  Sex: Female

DRUGS (2)
  1. JADELLE [Suspect]
     Active Substance: LEVONORGESTREL
  2. RIFAMPIN. [Suspect]
     Active Substance: RIFAMPIN

REACTIONS (2)
  - Drug ineffective [None]
  - Pregnancy with implant contraceptive [None]
